FAERS Safety Report 10238650 (Version 1)
Quarter: 2014Q2

REPORT INFORMATION
  Report Type: Spontaneous
  Country: FR (occurrence: FR)
  Receive Date: 20140616
  Receipt Date: 20140616
  Transmission Date: 20141212
  Serious: Yes (Hospitalization)
  Sender: FDA-Public Use
  Company Number: FR-ROCHE-1415056

PATIENT
  Age: 49 Year
  Sex: Male

DRUGS (6)
  1. VALIUM [Suspect]
     Indication: MANIA
     Route: 048
     Dates: start: 20140429
  2. ZYPREXA [Suspect]
     Indication: MANIA
     Route: 048
     Dates: start: 20140430, end: 20140502
  3. DEPAKINE [Suspect]
     Indication: MANIA
     Route: 048
     Dates: start: 20140430, end: 20140502
  4. RISPERDAL [Concomitant]
     Route: 048
     Dates: start: 20140506, end: 20140507
  5. ABILIFY [Concomitant]
     Indication: MANIA
     Route: 048
     Dates: start: 20140512, end: 20140516
  6. TERALITHE [Concomitant]
     Indication: MANIA
     Route: 048
     Dates: start: 20140519

REACTIONS (2)
  - Leukopenia [Recovered/Resolved]
  - Neutropenia [Recovered/Resolved]
